FAERS Safety Report 16360203 (Version 1)
Quarter: 2019Q2

REPORT INFORMATION
  Report Type: Spontaneous
  Country: FR (occurrence: FR)
  Receive Date: 20190528
  Receipt Date: 20190528
  Transmission Date: 20190711
  Serious: Yes (Other)
  Sender: FDA-Public Use
  Company Number: FR-TEVA-2019-FR-1055322

PATIENT
  Age: 27 Year
  Sex: Female
  Weight: 104 kg

DRUGS (19)
  1. VALACICLOVIR [Concomitant]
     Active Substance: VALACYCLOVIR HYDROCHLORIDE
  2. DIFICLIR [Concomitant]
     Active Substance: FIDAXOMICIN
  3. SANDIMMUN [Concomitant]
     Active Substance: CYCLOSPORINE
  4. ZARZIO [Concomitant]
     Active Substance: FILGRASTIM
  5. PANTOPRAZOLE [Concomitant]
     Active Substance: PANTOPRAZOLE
  6. ULTRAPROCT [Concomitant]
  7. VFEND [Concomitant]
     Active Substance: VORICONAZOLE
  8. SANDIMMUN [Concomitant]
     Active Substance: CYCLOSPORINE
  9. OXYNORM 50 MG/ML, SOLUTION INJECTABLE [Suspect]
     Active Substance: OXYCODONE HYDROCHLORIDE
     Indication: PAIN
     Route: 042
     Dates: start: 20190327, end: 20190408
  10. ONDANSETRON [Concomitant]
     Active Substance: ONDANSETRON
  11. VANCOMYCINE [Concomitant]
     Active Substance: VANCOMYCIN
  12. MAGNE B6 [Concomitant]
     Active Substance: MAGNESIUM\PYRIDOXINE
  13. SMECTA [Concomitant]
     Active Substance: MONTMORILLONITE
  14. ALPRAZOLAM. [Suspect]
     Active Substance: ALPRAZOLAM
     Indication: ANXIETY
     Route: 048
     Dates: start: 20190330, end: 20190408
  15. TRANXENE [Suspect]
     Active Substance: CLORAZEPATE DIPOTASSIUM
     Indication: ANXIETY
     Route: 048
     Dates: start: 20190327, end: 20190405
  16. SMECTA [Concomitant]
     Active Substance: MONTMORILLONITE
  17. RACECADOTRIL [Concomitant]
     Active Substance: RACECADOTRIL
  18. DAFLON [Concomitant]
  19. CELLCEPT [Concomitant]
     Active Substance: MYCOPHENOLATE MOFETIL\MYCOPHENOLATE MOFETIL HYDROCHLORIDE

REACTIONS (1)
  - Coma [Recovered/Resolved]

NARRATIVE: CASE EVENT DATE: 20190405
